FAERS Safety Report 6998937-2 (Version None)
Quarter: 2010Q3

REPORT INFORMATION
  Report Type: 
  Country: None (occurrence: None)
  Receive Date: 20100920
  Receipt Date: 20091002
  Transmission Date: 20110219
  Serious: No
  Sender: FDA-Public Use
  Company Number: US-ASTRAZENECA-2006UW04981

PATIENT
  Sex: Female

DRUGS (2)
  1. SEROQUEL [Suspect]
     Route: 048
  2. ZYPREXA [Suspect]
     Route: 065

REACTIONS (2)
  - DIABETES MELLITUS [None]
  - ILL-DEFINED DISORDER [None]
